FAERS Safety Report 18649177 (Version 3)
Quarter: 2021Q2

REPORT INFORMATION
  Report Type: Report from Study
  Country: None (occurrence: CO)
  Receive Date: 20201222
  Receipt Date: 20210514
  Transmission Date: 20210717
  Serious: Yes (Other)
  Sender: FDA-Public Use
  Company Number: CO-ABBVIE-20K-036-3642905-00

PATIENT
  Age: 47 Year
  Sex: Female
  Weight: 68 kg

DRUGS (5)
  1. HUMIRA [Suspect]
     Active Substance: ADALIMUMAB
     Indication: RHEUMATOID ARTHRITIS
     Route: 058
     Dates: start: 20180102
  2. HUMIRA [Suspect]
     Active Substance: ADALIMUMAB
     Route: 058
  3. HUMIRA [Suspect]
     Active Substance: ADALIMUMAB
     Route: 058
     Dates: end: 20201128
  4. HUMIRA [Suspect]
     Active Substance: ADALIMUMAB
     Route: 058
  5. HUMIRA [Suspect]
     Active Substance: ADALIMUMAB
     Indication: RHEUMATOID ARTHRITIS
     Route: 058
     Dates: end: 20201008

REACTIONS (19)
  - Fatigue [Recovered/Resolved]
  - Headache [Recovered/Resolved]
  - Muscle spasms [Recovering/Resolving]
  - Pulpitis dental [Recovering/Resolving]
  - Dental discomfort [Recovering/Resolving]
  - Skin ulcer [Recovering/Resolving]
  - Back pain [Recovering/Resolving]
  - Oropharyngeal pain [Recovered/Resolved]
  - Myalgia [Recovered/Resolved]
  - COVID-19 [Recovered/Resolved with Sequelae]
  - Asthenia [Recovering/Resolving]
  - Influenza like illness [Recovered/Resolved]
  - Sinusitis [Recovering/Resolving]
  - Mucosal inflammation [Recovered/Resolved]
  - Throat clearing [Not Recovered/Not Resolved]
  - Muscle contractions involuntary [Not Recovered/Not Resolved]
  - Insomnia [Recovering/Resolving]
  - Stomatitis [Recovered/Resolved]
  - Fatigue [Not Recovered/Not Resolved]

NARRATIVE: CASE EVENT DATE: 20201011
